FAERS Safety Report 20782139 (Version 5)
Quarter: 2022Q3

REPORT INFORMATION
  Report Type: Report from Study
  Country: US (occurrence: US)
  Receive Date: 20220504
  Receipt Date: 20220902
  Transmission Date: 20221026
  Serious: No
  Sender: FDA-Public Use
  Company Number: US-NOVARTISTESTPH-NVSC2022US101956

PATIENT
  Age: 48 Year
  Sex: Female

DRUGS (2)
  1. GLATOPA [Suspect]
     Active Substance: GLATIRAMER ACETATE
     Indication: Product used for unknown indication
     Dosage: UNK
     Route: 065
  2. GLATOPA [Suspect]
     Active Substance: GLATIRAMER ACETATE
     Dosage: 40 MG, Q48H
     Route: 058
     Dates: start: 20220502

REACTIONS (9)
  - Skin swelling [Unknown]
  - Device failure [Unknown]
  - Pain in extremity [Unknown]
  - Dyskinesia [Unknown]
  - Heart rate increased [Unknown]
  - Flushing [Unknown]
  - Injection site swelling [Unknown]
  - Contusion [Unknown]
  - Pain [Unknown]

NARRATIVE: CASE EVENT DATE: 20220819
